FAERS Safety Report 5533222-7 (Version None)
Quarter: 2007Q4

REPORT INFORMATION
  Report Type: 
  Country: None (occurrence: None)
  Receive Date: 20071204
  Receipt Date: 20071128
  Transmission Date: 20080405
  Serious: Yes (Life-Threatening, Hospitalization)
  Sender: FDA-Public Use
  Company Number: PHHO2007VE05184

PATIENT
  Age: 86 Year
  Sex: Female

DRUGS (4)
  1. ELANTAN [Concomitant]
     Dosage: 20 MG, QD
  2. LASIX [Concomitant]
     Dosage: UNK, QD
  3. DIOVAN [Suspect]
     Dosage: 80 MG, QD
     Route: 048
     Dates: start: 20020101, end: 20050101
  4. DIOVAN [Suspect]
     Dosage: 160 MG, QD
     Route: 048
     Dates: start: 20050101

REACTIONS (1)
  - ATRIAL FIBRILLATION [None]
